FAERS Safety Report 9882575 (Version 1)
Quarter: 2014Q1

REPORT INFORMATION
  Report Type: Spontaneous
  Country: BR (occurrence: BR)
  Receive Date: 20140207
  Receipt Date: 20140207
  Transmission Date: 20141002
  Serious: Yes (Hospitalization)
  Sender: FDA-Public Use
  Company Number: BR-ASTRAZENECA-2014SE07632

PATIENT
  Sex: Female

DRUGS (4)
  1. BRILINTA [Suspect]
     Route: 048
     Dates: start: 20130801, end: 20140127
  2. VASTAREL [Concomitant]
  3. LOSARTAN POTASSIUM [Concomitant]
  4. MONOCORDIL [Concomitant]

REACTIONS (2)
  - Venous occlusion [Not Recovered/Not Resolved]
  - Dyspnoea [Not Recovered/Not Resolved]
